FAERS Safety Report 4592472-7 (Version None)
Quarter: 2005Q1

REPORT INFORMATION
  Report Type: 
  Country: None (occurrence: None)
  Receive Date: 20050222
  Receipt Date: 20050208
  Transmission Date: 20050727
  Serious: Yes (Hospitalization)
  Sender: FDA-Public Use
  Company Number: 2005028407

PATIENT
  Age: 49 Year
  Sex: Female

DRUGS (8)
  1. BENADRYL [Suspect]
     Dosage: ORAL
     Route: 048
     Dates: start: 20000801
  2. BAYER CHILDREN'S COLD TABLETS (ACETYLSALICYLIC ACID, PHENYLPROPANOLAMI [Suspect]
     Indication: NASOPHARYNGITIS
     Dosage: ORAL
     Route: 048
     Dates: start: 20000805
  3. GUAIFENESIN (GUAIFENESIN) [Suspect]
     Dosage: ORAL
     Route: 048
  4. ANTIHYPERTENSIVES (ANTIHYPERTENSIVES) [Concomitant]
  5. HYDROCHLOROTHIAZIDE [Concomitant]
  6. CONJUGATED ESTROGENS [Concomitant]
  7. ONE-A-DAY (ASCORBIC ACID, CYANOCOBALAMIN, ERGOCALCIFEROL, NICOTINAMIDE [Concomitant]
  8. ACETAMINOPHEN [Concomitant]

REACTIONS (17)
  - AORTIC ATHEROSCLEROSIS [None]
  - AORTIC VALVE INCOMPETENCE [None]
  - ATRIOVENTRICULAR BLOCK FIRST DEGREE [None]
  - BACK DISORDER [None]
  - BLOOD PRESSURE INCREASED [None]
  - CARDIAC DISORDER [None]
  - CAROTID ARTERY STENOSIS [None]
  - CEREBRAL ISCHAEMIA [None]
  - CEREBROVASCULAR ACCIDENT [None]
  - DILATATION ATRIAL [None]
  - EMOTIONAL DISORDER [None]
  - HYPOAESTHESIA [None]
  - MITRAL VALVE DISEASE [None]
  - MITRAL VALVE INCOMPETENCE [None]
  - OEDEMA PERIPHERAL [None]
  - TRICUSPID VALVE INCOMPETENCE [None]
  - VISUAL ACUITY REDUCED [None]
